FAERS Safety Report 8578841 (Version 2)
Quarter: 2012Q4

REPORT INFORMATION
  Report Type: 
  Country: US (occurrence: US)
  Receive Date: 20120524
  Receipt Date: 20121218
  Transmission Date: 20130627
  Serious: Yes (Hospitalization)
  Sender: FDA-Public Use
  Company Number: US-ELI_LILLY_AND_COMPANY-US201205005243

PATIENT
  Sex: Female
  Weight: 74 kg

DRUGS (4)
  1. HUMATROPE [Suspect]
     Indication: HYPOPITUITARISM
     Dosage: 0.2 mg, qd
     Route: 058
  2. DESMOPRESSIN [Concomitant]
  3. ESTROGEN [Concomitant]
     Dosage: 1 g, 2/W
     Route: 067
  4. ARMOUR THYROID [Concomitant]
     Dosage: 90 mg, qd

REACTIONS (2)
  - Gastrointestinal haemorrhage [Unknown]
  - Colitis ischaemic [Unknown]
